FAERS Safety Report 5413422-7 (Version None)
Quarter: 2007Q3

REPORT INFORMATION
  Report Type: 
  Country: None (occurrence: None)
  Receive Date: 20070810
  Receipt Date: 20070810
  Transmission Date: 20080115
  Serious: Yes (Life-Threatening)
  Sender: FDA-Public Use
  Company Number: None

PATIENT
  Age: 1 Month
  Sex: Male
  Weight: 2.7216 kg

DRUGS (2)
  1. AYR   BABY SALINE NOSE DROPS [Suspect]
     Indication: NASAL CONGESTION
     Dosage: 5-6 DROPS PRN NASAL
     Route: 045
     Dates: start: 20070808, end: 20070808
  2. REGLAN [Concomitant]

REACTIONS (2)
  - LIP OEDEMA [None]
  - NASAL OEDEMA [None]
